FAERS Safety Report 13071832 (Version 1)
Quarter: 2016Q4

REPORT INFORMATION
  Report Type: Spontaneous
  Country: FR (occurrence: FR)
  Receive Date: 20161229
  Receipt Date: 20161229
  Transmission Date: 20170207
  Serious: Yes (Hospitalization)
  Sender: FDA-Public Use
  Company Number: FR-PFIZER INC-2016595457

PATIENT
  Age: 47 Year
  Sex: Male

DRUGS (8)
  1. LIORESAL [Concomitant]
     Active Substance: BACLOFEN
     Dosage: 20 MG, 1X/DAY
  2. FRAGMINE [Suspect]
     Active Substance: DALTEPARIN SODIUM
     Indication: THROMBOSIS PROPHYLAXIS
     Dosage: 1 DF, 1X/DAY
     Route: 058
     Dates: start: 20150420, end: 201504
  3. XENETIX [Suspect]
     Active Substance: IOBITRIDOL
     Indication: COMPUTERISED TOMOGRAM
     Dosage: 1 DF, SINGLE
     Route: 042
     Dates: start: 20150420, end: 20150420
  4. LAROXYL [Concomitant]
     Active Substance: AMITRIPTYLINE
     Dosage: 9 DROPS IN THE EVENING
  5. TRAMADOL /00599202/ [Concomitant]
     Active Substance: TRAMADOL
     Dosage: 50 MG, 4X/DAY IF NEEDED
  6. DOTAREM [Suspect]
     Active Substance: GADOTERATE MEGLUMINE
     Indication: NUCLEAR MAGNETIC RESONANCE IMAGING
     Dosage: 1 DF, SINGLE
     Route: 042
     Dates: start: 20150422, end: 20150422
  7. DEXAMETHASONE. [Suspect]
     Active Substance: DEXAMETHASONE
     Indication: MENINGITIS BACTERIAL
     Dosage: 40 MG, 1X/DAY
     Route: 042
     Dates: start: 20150420, end: 20150423
  8. ROCEPHINE [Suspect]
     Active Substance: CEFTRIAXONE SODIUM
     Indication: MENINGITIS BACTERIAL
     Dosage: 3 G, 2X/DAY
     Route: 042
     Dates: start: 20150420, end: 20150430

REACTIONS (4)
  - Haemoglobin decreased [Not Recovered/Not Resolved]
  - Transaminases increased [Recovered/Resolved]
  - Thrombocytopenia [Recovering/Resolving]
  - Rash maculo-papular [Recovered/Resolved]

NARRATIVE: CASE EVENT DATE: 20150428
